FAERS Safety Report 4640841-9 (Version None)
Quarter: 2005Q2

REPORT INFORMATION
  Report Type: 
  Country: None (occurrence: None)
  Receive Date: 20050324
  Receipt Date: 20041201
  Transmission Date: 20051028
  Serious: Yes (Other)
  Sender: FDA-Public Use
  Company Number: 210834

PATIENT
  Age: 68 Year
  Sex: Female
  Weight: 86.8 kg

DRUGS (4)
  1. AVASTIN [Suspect]
     Indication: COLORECTAL CANCER METASTATIC
     Dosage: 430 MG, Q2W, INTRAVENOUS
     Route: 042
     Dates: start: 20041013, end: 20041130
  2. FLUOROURACIL [Concomitant]
  3. LEUCOVORIN CALCIUM [Concomitant]
  4. IRINOTECA (IRINOTECA HYDROCHLORIDE) [Concomitant]

REACTIONS (3)
  - HYPERTENSION [None]
  - NEPHROTIC SYNDROME [None]
  - OEDEMA PERIPHERAL [None]
